FAERS Safety Report 7071491-5 (Version None)
Quarter: 2010Q4

REPORT INFORMATION
  Report Type: 
  Country: None (occurrence: None)
  Receive Date: 20101029
  Receipt Date: 20090910
  Transmission Date: 20110411
  Serious: No
  Sender: FDA-Public Use
  Company Number: A0806772A

PATIENT
  Age: 58 Year
  Sex: Male

DRUGS (7)
  1. ADVAIR DISKUS 100/50 [Suspect]
     Indication: ASTHMA
     Dosage: 1PUFF TWICE PER DAY
     Route: 055
     Dates: start: 20081101
  2. ALBUTEROL [Concomitant]
  3. SPIRIVA [Concomitant]
  4. SINGULAIR [Concomitant]
  5. PLAVIX [Concomitant]
  6. METOPROLOL [Concomitant]
  7. XANAX [Concomitant]

REACTIONS (4)
  - CANDIDIASIS [None]
  - DRUG INEFFECTIVE [None]
  - DRY THROAT [None]
  - TONGUE DRY [None]
